FAERS Safety Report 10040547 (Version 2)
Quarter: 2014Q2

REPORT INFORMATION
  Report Type: Spontaneous
  Country: GB (occurrence: GB)
  Receive Date: 20140327
  Receipt Date: 20140508
  Transmission Date: 20141212
  Serious: Yes (Hospitalization)
  Sender: FDA-Public Use
  Company Number: GB-RANBAXY-2014RR-79197

PATIENT
  Age: 57 Year
  Sex: Female

DRUGS (17)
  1. CEFTRIAXONE [Suspect]
     Indication: ENCEPHALITIS
     Dosage: 1 G, VIALS
     Route: 042
     Dates: start: 20140220
  2. ACICLOVIR [Suspect]
     Indication: ENCEPHALITIS
     Dosage: UNK
     Route: 042
     Dates: start: 20140220, end: 20140224
  3. PARACETAMOL [Suspect]
     Indication: ENCEPHALITIS
     Dosage: 1 G, STARTED THIS ADMISSION
     Route: 065
  4. PARACETAMOL [Suspect]
     Dosage: STARTED THIS ADMISSION
  5. FRAGMIN [Concomitant]
     Indication: PRODUCT USED FOR UNKNOWN INDICATION
     Dosage: 5000 IU DAILY
     Route: 065
  6. SANDO-K [Concomitant]
     Indication: PRODUCT USED FOR UNKNOWN INDICATION
     Dosage: 1 DF, BID
     Route: 065
     Dates: start: 20140224
  7. NIMOTOP [Concomitant]
     Indication: PRODUCT USED FOR UNKNOWN INDICATION
     Dosage: 60 MG, EVERY FOUR HOURS
     Route: 065
  8. PABRINEX [Concomitant]
     Indication: PRODUCT USED FOR UNKNOWN INDICATION
     Dosage: 2 DF, TID
     Route: 065
     Dates: start: 20140216, end: 20140219
  9. LORAZEPAM [Concomitant]
     Indication: PRODUCT USED FOR UNKNOWN INDICATION
     Dosage: 0.5 MG, QID
     Route: 040
     Dates: start: 20140224
  10. CHLORDIAZEPOXIDE [Concomitant]
     Indication: PRODUCT USED FOR UNKNOWN INDICATION
     Dosage: REDUCING DOSE
     Route: 065
     Dates: start: 20140217
  11. HALOPERIDOL [Concomitant]
     Indication: PRODUCT USED FOR UNKNOWN INDICATION
     Dosage: TWICE DAILY WHEN REQUIRED
     Route: 040
     Dates: start: 20140217, end: 20140223
  12. OMEPRAZOLE [Concomitant]
     Indication: PRODUCT USED FOR UNKNOWN INDICATION
     Dosage: 20 MG, DAILY
     Route: 065
     Dates: start: 20140216
  13. LEVETIRACETAM [Concomitant]
     Indication: PRODUCT USED FOR UNKNOWN INDICATION
     Dosage: 500MG EVERY MORNING AND 1G AT NIGHT
     Route: 065
  14. ASPIRIN [Concomitant]
     Indication: PRODUCT USED FOR UNKNOWN INDICATION
     Dosage: 75 MG, DAILY
     Route: 065
  15. LAMOTRIGINE [Concomitant]
     Indication: PRODUCT USED FOR UNKNOWN INDICATION
     Dosage: 450 MG, BID
     Route: 065
  16. MULTIVITAMIN [Concomitant]
     Indication: PRODUCT USED FOR UNKNOWN INDICATION
     Dosage: 1 DF, DAILY
     Route: 065
     Dates: start: 20140216
  17. VITAMIN SUPPLEMENT [Concomitant]
     Indication: PRODUCT USED FOR UNKNOWN INDICATION
     Dosage: 1 DF, DAILY
     Route: 065

REACTIONS (1)
  - Alanine aminotransferase increased [Recovered/Resolved with Sequelae]
